FAERS Safety Report 5730510-6 (Version None)
Quarter: 2008Q2

REPORT INFORMATION
  Report Type: 
  Country: None (occurrence: None)
  Receive Date: 20080502
  Receipt Date: 20080418
  Transmission Date: 20081010
  Serious: Yes (Death, Other)
  Sender: FDA-Public Use
  Company Number: 2008S1006899

PATIENT
  Age: 55 Year
  Sex: Male

DRUGS (2)
  1. AZATHIOPRINE [Suspect]
     Indication: RENAL TRANSPLANT
     Dosage: 75 MG, DAILY
  2. METHYLPREDNISOLONE [Suspect]
     Indication: RENAL TRANSPLANT
     Dosage: 4 MG, DAILY

REACTIONS (28)
  - BACK PAIN [None]
  - BURSITIS [None]
  - DISEASE PROGRESSION [None]
  - GAIT DISTURBANCE [None]
  - HEPATIC FAILURE [None]
  - HEPATITIS C [None]
  - HEPATOTOXICITY [None]
  - HYPOAESTHESIA [None]
  - HYPOREFLEXIA [None]
  - INTERVERTEBRAL DISCITIS [None]
  - KYPHOSIS [None]
  - MALAISE [None]
  - MENINGEAL NEOPLASM [None]
  - MOTOR DYSFUNCTION [None]
  - MUSCLE DISORDER [None]
  - MYCOBACTERIUM CHELONEI INFECTION [None]
  - NECK DEFORMITY [None]
  - NECK PAIN [None]
  - NERVOUS SYSTEM DISORDER [None]
  - OSTEOLYSIS [None]
  - OSTEOMYELITIS [None]
  - PAIN IN EXTREMITY [None]
  - SKIN LESION [None]
  - SPINAL CORD COMPRESSION [None]
  - SPONDYLOLISTHESIS [None]
  - TINNITUS [None]
  - TRANSAMINASES INCREASED [None]
  - VERTIGO [None]
